FAERS Safety Report 19866070 (Version 1)
Quarter: 2021Q3

REPORT INFORMATION
  Report Type: Spontaneous
  Country: FR (occurrence: FR)
  Receive Date: 20210922
  Receipt Date: 20210922
  Transmission Date: 20211014
  Serious: Yes (Other)
  Sender: FDA-Public Use
  Company Number: FR-SA-2021SA308227

PATIENT
  Age: 69 Year
  Sex: Male

DRUGS (1)
  1. FASTURTEC [Suspect]
     Active Substance: RASBURICASE
     Indication: PROPHYLAXIS
     Dosage: UNK
     Route: 042
     Dates: start: 20210804, end: 20210804

REACTIONS (3)
  - Hypotension [Recovered/Resolved]
  - Tachycardia [Recovered/Resolved]
  - Pyrexia [Recovered/Resolved]

NARRATIVE: CASE EVENT DATE: 20210804
